FAERS Safety Report 9184931 (Version 2)
Quarter: 2013Q1

REPORT INFORMATION
  Report Type: Spontaneous
  Country: GB (occurrence: GB)
  Receive Date: 20130325
  Receipt Date: 20130325
  Transmission Date: 20140127
  Serious: Yes (Other)
  Sender: FDA-Public Use
  Company Number: GB-JNJFOC-2004029586

PATIENT
  Age: 80 Year
  Sex: Female

DRUGS (6)
  1. IBUPROFEN [Suspect]
     Indication: ARTHRALGIA
     Dosage: DAILY DOSE TEXT: 400MG TID
     Route: 048
  2. IBUPROFEN [Suspect]
     Indication: ARTHRALGIA
     Dosage: DAILY DOSE TEXT: 400MG TID
     Route: 048
  3. LEVOBUNOLOL [Concomitant]
     Indication: GLAUCOMA
     Dosage: DAILY DOSE TEXT: AMOUNT UNSPECIFIED
     Route: 065
  4. LATANOPROST [Concomitant]
     Indication: GLAUCOMA
     Dosage: DAILY DOSE TEXT: AMOUNT UNSPECIFIED
     Route: 065
     Dates: start: 1999
  5. DORZOLAMIDE [Concomitant]
     Indication: GLAUCOMA
     Dosage: DAILY DOSE TEXT: AMOUNT UNSPECIFIED
     Route: 065
     Dates: start: 1999
  6. METHOTREXATE [Concomitant]
     Indication: PSORIASIS
     Dosage: DAILY DOSE TEXT: 10 MG/WEEKLY
     Route: 065

REACTIONS (3)
  - Acute generalised exanthematous pustulosis [Recovered/Resolved]
  - Disease recurrence [None]
  - Psoriasis [None]
